FAERS Safety Report 8311794 (Version 3)
Quarter: 2014Q1

REPORT INFORMATION
  Report Type: Spontaneous
  Country: US (occurrence: US)
  Receive Date: 20111227
  Receipt Date: 20140116
  Transmission Date: 20141002
  Serious: Yes (Other)
  Sender: FDA-Public Use
  Company Number: US-BAYER-2011-122036

PATIENT
  Age: 25 Year
  Sex: Female
  Weight: 86.17 kg

DRUGS (4)
  1. YASMIN [Suspect]
     Indication: CONTRACEPTION
     Dosage: UNK
     Dates: start: 20081216, end: 20090825
  2. YAZ [Suspect]
     Indication: CONTRACEPTION
     Dosage: UNK
     Dates: start: 20090825, end: 20100302
  3. SODIUM FLUORIDE [Concomitant]
  4. ALLEGRA [Concomitant]
     Dosage: UNK
     Dates: start: 20091112

REACTIONS (2)
  - Gallbladder disorder [None]
  - Cholecystitis chronic [None]
